FAERS Safety Report 19105021 (Version 1)
Quarter: 2021Q2

REPORT INFORMATION
  Report Type: Spontaneous
  Country: ES (occurrence: ES)
  Receive Date: 20210407
  Receipt Date: 20210407
  Transmission Date: 20210717
  Serious: Yes (Life-Threatening, Other)
  Sender: FDA-Public Use
  Company Number: ES-SA-2021SA104214

PATIENT
  Sex: Male

DRUGS (3)
  1. LANTUS [Suspect]
     Active Substance: INSULIN GLARGINE
     Dosage: 18UI IN THE MORNING, 62 OR 64 IU IN THE EVENING
  2. HUMALOG [Concomitant]
     Active Substance: INSULIN LISPRO
     Indication: TYPE 2 DIABETES MELLITUS
     Dosage: 6 IU, TID
     Route: 058
  3. LANTUS [Suspect]
     Active Substance: INSULIN GLARGINE
     Dosage: 62 OR 64UI IN THE EVENING

REACTIONS (4)
  - Tongue paralysis [Recovered/Resolved]
  - Exophthalmos [Recovered/Resolved]
  - Inappropriate schedule of product administration [Unknown]
  - Hypoglycaemia [Recovered/Resolved]
